FAERS Safety Report 18278995 (Version 2)
Quarter: 2021Q4

REPORT INFORMATION
  Report Type: Spontaneous
  Country: CA (occurrence: CA)
  Receive Date: 20200917
  Receipt Date: 20211202
  Transmission Date: 20220303
  Serious: Yes (Hospitalization, Other)
  Sender: FDA-Public Use
  Company Number: CA-SAMSUNG BIOEPIS-SB-2020-28857

PATIENT
  Age: 44 Year
  Sex: Male
  Weight: 80 kg

DRUGS (2)
  1. INFLIXIMAB [Suspect]
     Active Substance: INFLIXIMAB
     Indication: Ankylosing spondylitis
     Route: 042
  2. INFLIXIMAB [Suspect]
     Active Substance: INFLIXIMAB
     Route: 042

REACTIONS (14)
  - Weight increased [Recovered/Resolved]
  - Abnormal loss of weight [Recovered/Resolved]
  - Abscess neck [Recovered/Resolved]
  - Appetite disorder [Recovered/Resolved]
  - COVID-19 [Recovered/Resolved]
  - Infection [Recovered/Resolved]
  - Prostatic abscess [Recovered/Resolved]
  - Seizure [Recovered/Resolved]
  - Subdural abscess [Recovered/Resolved]
  - Type 2 diabetes mellitus [Recovered/Resolved]
  - Blood pressure fluctuation [Unknown]
  - Intentional product use issue [Recovered/Resolved]
  - Inappropriate schedule of product administration [Recovered/Resolved]
  - Off label use [Recovered/Resolved]
